FAERS Safety Report 11598549 (Version 1)
Quarter: 2015Q3

REPORT INFORMATION
  Report Type: Spontaneous
  Country: US (occurrence: US)
  Receive Date: 20150916
  Receipt Date: 20150916
  Transmission Date: 20151125
  Serious: No
  Sender: FDA-Public Use
  Company Number: US-ELI_LILLY_AND_COMPANY-US200712001791

PATIENT
  Age: 76 Year
  Sex: Female

DRUGS (4)
  1. XANAX [Concomitant]
     Active Substance: ALPRAZOLAM
     Dosage: UNK, EACH EVENING
  2. HYDROXYUREA. [Concomitant]
     Active Substance: HYDROXYUREA
     Dosage: 500 MG, DAILY (1/D)
  3. CALTRATE [Concomitant]
     Active Substance: CALCIUM CARBONATE
     Indication: SUPPLEMENTATION THERAPY
     Dosage: 1800 MG, DAILY (1/D)
  4. FORTEO [Suspect]
     Active Substance: TERIPARATIDE
     Indication: OSTEOPOROSIS
     Dates: start: 20070408, end: 20071204

REACTIONS (2)
  - Renal impairment [Unknown]
  - Blood calcium increased [Unknown]

NARRATIVE: CASE EVENT DATE: 20071205
